FAERS Safety Report 9466760 (Version 2)
Quarter: 2013Q3

REPORT INFORMATION
  Report Type: Report from Study
  Country: AU (occurrence: AU)
  Receive Date: 20130820
  Receipt Date: 20130820
  Transmission Date: 20140515
  Serious: Yes (Life-Threatening, Hospitalization)
  Sender: FDA-Public Use
  Company Number: PHHY2013AU088289

PATIENT
  Sex: Male

DRUGS (1)
  1. CLOZARIL [Suspect]
     Dosage: 350 MG, UNK
     Dates: start: 19761204, end: 20130723

REACTIONS (5)
  - Injury [Unknown]
  - Accident [Unknown]
  - Head injury [Unknown]
  - Coma [Unknown]
  - Coma scale abnormal [Unknown]
